FAERS Safety Report 15741286 (Version 6)
Quarter: 2019Q2

REPORT INFORMATION
  Report Type: Report from Study
  Country: DE (occurrence: DE)
  Receive Date: 20181219
  Receipt Date: 20190501
  Transmission Date: 20190711
  Serious: Yes (Hospitalization)
  Sender: FDA-Public Use
  Company Number: DE-INCYTE CORPORATION-2018IN009965

PATIENT

DRUGS (16)
  1. LIDOCAINE. [Concomitant]
     Active Substance: LIDOCAINE
     Indication: PAIN
     Dosage: 700 MG, QHS
     Route: 062
     Dates: end: 201812
  2. CLOBETASOL [Concomitant]
     Active Substance: CLOBETASOL
     Indication: LICHEN SCLEROSUS
     Dosage: 0.44 MG, BID ( 1-0-1)
     Route: 065
  3. METOPROLOL. [Concomitant]
     Active Substance: METOPROLOL
     Indication: HYPERTENSION
     Dosage: 95 MG, BID (1/2-0-1/2)
     Route: 048
  4. L-THYROXIN [Concomitant]
     Active Substance: LEVOTHYROXINE SODIUM
     Dosage: 150 UG, QOD (EVERY SECOND DAY) (1-0-0)
     Route: 048
     Dates: end: 20181201
  5. LYRICA [Concomitant]
     Active Substance: PREGABALIN
     Indication: PARAESTHESIA
     Dosage: 75 MG, QHS
     Route: 048
     Dates: start: 20180605, end: 20180703
  6. CANDESARTAN. [Concomitant]
     Active Substance: CANDESARTAN
     Indication: HYPERTENSION
     Dosage: 32 MG, QD (1-0-0)
     Route: 048
     Dates: start: 2018
  7. TELMISARTAN. [Concomitant]
     Active Substance: TELMISARTAN
     Indication: HYPERTENSION
     Dosage: 80 MG, QD (0-0-1)
     Route: 048
     Dates: end: 20180901
  8. L-THYROXIN [Concomitant]
     Active Substance: LEVOTHYROXINE SODIUM
     Indication: HYPOTHYROIDISM
     Dosage: 125 UG, QOD (EVERY SECOND DAY) (1-0-0)
     Route: 048
     Dates: end: 201812
  9. OMEPRAZOL [Concomitant]
     Active Substance: OMEPRAZOLE
     Indication: GASTROOESOPHAGEAL REFLUX DISEASE
     Dosage: 40 MG, QD (0-0-1)
     Route: 048
  10. JAKAVI [Suspect]
     Active Substance: RUXOLITINIB
     Indication: POLYCYTHAEMIA VERA
     Dosage: 10 MG, BID
     Route: 048
     Dates: start: 20180327
  11. L-THYROXIN [Concomitant]
     Active Substance: LEVOTHYROXINE SODIUM
     Dosage: 125 UG, 1-0-0
     Route: 048
     Dates: start: 201812
  12. DEKRISTOL [Concomitant]
     Active Substance: CHOLECALCIFEROL
     Indication: PROPHYLAXIS
     Dosage: 20000 IE, QMO
     Route: 048
  13. CERTOPARIN SODIUM [Concomitant]
     Active Substance: CERTOPARIN SODIUM
     Indication: THROMBOSIS PROPHYLAXIS
     Dosage: 8000 IU, QD (1-0-0)
     Route: 058
     Dates: start: 20181217
  14. MOXONIDINE [Concomitant]
     Active Substance: MOXONIDINE
     Indication: HYPOTENSION
     Dosage: 0.3 MG, QD (0-0-1)
     Route: 048
     Dates: start: 2017, end: 201812
  15. ASPIRIN. [Concomitant]
     Active Substance: ASPIRIN
     Indication: POLYCYTHAEMIA VERA
     Dosage: 100 MG, QOD (1-0-0) (EVERY SECOND DAY)
     Route: 058
     Dates: start: 20180508
  16. MOXONIDINE [Concomitant]
     Active Substance: MOXONIDINE
     Dosage: 0.3 MG, QD (1-0-1)
     Route: 048
     Dates: start: 201812

REACTIONS (6)
  - Contusion [Recovering/Resolving]
  - Fall [Not Recovered/Not Resolved]
  - Stomatitis [Not Recovered/Not Resolved]
  - Erysipelas [Recovered/Resolved]
  - Hyperhidrosis [Not Recovered/Not Resolved]
  - Haematoma [Not Recovered/Not Resolved]

NARRATIVE: CASE EVENT DATE: 20180605
